FAERS Safety Report 8282161-X (Version None)
Quarter: 2012Q2

REPORT INFORMATION
  Report Type: 
  Country: None (occurrence: None)
  Receive Date: 20120413
  Receipt Date: 20120412
  Transmission Date: 20120825
  Serious: Yes (Life-Threatening, Other)
  Sender: FDA-Public Use
  Company Number: PHHY2012CA023531

PATIENT
  Sex: Female

DRUGS (1)
  1. CLOZARIL [Suspect]
     Dosage: UNK UKN, UNK
     Route: 048
     Dates: start: 20120113

REACTIONS (1)
  - SMALL CELL LUNG CANCER STAGE UNSPECIFIED [None]
